FAERS Safety Report 7109300-8 (Version None)
Quarter: 2010Q4

REPORT INFORMATION
  Report Type: 
  Country: None (occurrence: None)
  Receive Date: 20101117
  Receipt Date: 20101104
  Transmission Date: 20110411
  Serious: Yes (Other)
  Sender: FDA-Public Use
  Company Number: CA-MYLANLABS-2010S1020644

PATIENT
  Age: 38 Year
  Sex: Male

DRUGS (6)
  1. BUPROPION [Suspect]
     Route: 065
  2. BUPROPION [Suspect]
     Route: 045
  3. GLIBENCLAMIDE [Concomitant]
     Route: 065
  4. METFORMIN [Concomitant]
     Route: 065
  5. OLANZAPINE [Concomitant]
     Route: 065
  6. PHENYTOIN [Concomitant]
     Indication: CONVULSION
     Route: 048

REACTIONS (4)
  - DRUG ABUSE [None]
  - EUPHORIC MOOD [None]
  - GRAND MAL CONVULSION [None]
  - INTENTIONAL DRUG MISUSE [None]
